FAERS Safety Report 7428439-0 (Version None)
Quarter: 2011Q2

REPORT INFORMATION
  Report Type: 
  Country: None (occurrence: None)
  Receive Date: 20110421
  Receipt Date: 20110411
  Transmission Date: 20111010
  Serious: Yes (Other)
  Sender: FDA-Public Use
  Company Number: PHHY2011ES29681

PATIENT
  Age: 82 Year
  Sex: Female

DRUGS (3)
  1. ASPIRIN [Concomitant]
     Dosage: 100 MG, QD
     Route: 048
  2. EXELON [Suspect]
     Indication: DEMENTIA ALZHEIMER'S TYPE
     Dosage: 9.5 MG PATCH DAILY
     Route: 062
     Dates: start: 20110201, end: 20110314
  3. SIMVASTATIN [Concomitant]
     Dosage: 20 MG, QD
     Route: 048

REACTIONS (2)
  - TOXIC SKIN ERUPTION [None]
  - RASH [None]
